FAERS Safety Report 6395808-X (Version None)
Quarter: 2009Q4

REPORT INFORMATION
  Report Type: 
  Country: None (occurrence: None)
  Receive Date: 20091009
  Receipt Date: 20090707
  Transmission Date: 20100525
  Serious: No
  Sender: FDA-Public Use
  Company Number: A0791619A

PATIENT
  Age: 46 Year
  Sex: Female

DRUGS (7)
  1. TYKERB [Suspect]
     Indication: BREAST CANCER
     Dosage: 1250MG PER DAY
     Route: 048
     Dates: start: 20090606
  2. COUMADIN [Concomitant]
  3. ZOLOFT [Concomitant]
  4. FENTANYL TRANSDERMAL SYSTEM [Concomitant]
  5. PERCOCET [Concomitant]
  6. XANAX [Concomitant]
  7. XELODA [Concomitant]

REACTIONS (4)
  - DIARRHOEA [None]
  - FATIGUE [None]
  - PRURITUS [None]
  - RASH [None]
